FAERS Safety Report 6635779-1 (Version None)
Quarter: 2010Q1

REPORT INFORMATION
  Report Type: 
  Country: None (occurrence: None)
  Receive Date: 20100316
  Receipt Date: 20100305
  Transmission Date: 20100710
  Serious: Yes (Hospitalization)
  Sender: FDA-Public Use
  Company Number: US-BIOGENIDEC-2010BI001356

PATIENT
  Age: 56 Year
  Sex: Male

DRUGS (1)
  1. TYSABRI [Suspect]
     Indication: MULTIPLE SCLEROSIS
     Route: 042
     Dates: start: 20100108

REACTIONS (14)
  - ARTHRITIS [None]
  - CHILLS [None]
  - COGNITIVE DISORDER [None]
  - COLD SWEAT [None]
  - HEADACHE [None]
  - INFUSION SITE PAIN [None]
  - INSOMNIA [None]
  - LETHARGY [None]
  - MALAISE [None]
  - NAUSEA [None]
  - PERIPHERAL COLDNESS [None]
  - PRURITUS [None]
  - SHOULDER OPERATION [None]
  - TINNITUS [None]
